FAERS Safety Report 5008021-5 (Version None)
Quarter: 2006Q2

REPORT INFORMATION
  Report Type: 
  Country: None (occurrence: None)
  Receive Date: 20060404
  Receipt Date: 20050428
  Transmission Date: 20061013
  Serious: Yes (Other)
  Sender: FDA-Public Use
  Company Number: 2005067464

PATIENT
  Age: 14 Year
  Sex: Male

DRUGS (7)
  1. GEODON [Suspect]
     Indication: AFFECTIVE DISORDER
     Dosage: 140 MG (2 IN 1 D), ORAL
     Route: 048
     Dates: start: 20050408
  2. ATOMOXETINE HYDROCHLORIDE (ATOMOXETINE HYDROCHLORIDE) [Concomitant]
  3. SERTRALINE HCL [Concomitant]
  4. GUANFACINE HYDROCHLORIDE (GUANFACINE HYDROCHLORIDE) [Concomitant]
  5. LITHIUM (LITHIUM) [Concomitant]
  6. FLUTICASONE PROPIONATE [Concomitant]
  7. LORATADINE [Concomitant]

REACTIONS (2)
  - LEUKOPENIA [None]
  - RED BLOOD CELL COUNT DECREASED [None]
